FAERS Safety Report 18528912 (Version 2)
Quarter: 2021Q3

REPORT INFORMATION
  Report Type: Spontaneous
  Country: US (occurrence: US)
  Receive Date: 20201120
  Receipt Date: 20210817
  Transmission Date: 20211014
  Serious: No
  Sender: FDA-Public Use
  Company Number: US-PFIZER INC-2020455883

PATIENT
  Age: 65 Year
  Sex: Male
  Weight: 60.32 kg

DRUGS (1)
  1. HYDROCORTISONE. [Suspect]
     Active Substance: HYDROCORTISONE
     Indication: ADRENAL DISORDER
     Dosage: 15 MG, DAILY (10 MG IN AM AND 5 MG AT NIGHT)

REACTIONS (1)
  - Therapeutic response unexpected [Unknown]
